FAERS Safety Report 13948761 (Version 3)
Quarter: 2017Q4

REPORT INFORMATION
  Report Type: Report from Study
  Country: US (occurrence: BR)
  Receive Date: 20170908
  Receipt Date: 20171219
  Transmission Date: 20180320
  Serious: Yes (Other)
  Sender: FDA-Public Use
  Company Number: US-SUNOVION-2017SUN003943

PATIENT
  Sex: Female
  Weight: 76 kg

DRUGS (21)
  1. INDACATEROL AND GLYCOPYRROLATE [Suspect]
     Active Substance: GLYCOPYRROLATE\INDACATEROL MALEATE
     Indication: BRONCHITIS CHRONIC
     Dosage: 1 DF (GLYCOPYRRONIUM BROMIDE 50 UG/INDACATEROL 110 UG), QD
     Route: 055
     Dates: start: 201701
  2. ALENIA [Concomitant]
     Active Substance: BUDESONIDE\FORMOTEROL FUMARATE
     Indication: BRONCHITIS CHRONIC
     Dosage: UNK, TID (12/400 UG, INHALATION, TID)
     Route: 055
     Dates: start: 2000
  3. ANTIDEPRESSANTS [Concomitant]
     Active Substance: UNSPECIFIED INGREDIENT
     Dosage: UNK
  4. STILNOX [Concomitant]
     Active Substance: ZOLPIDEM TARTRATE
     Dosage: UNK
  5. INDACATEROL AND GLYCOPYRROLATE [Suspect]
     Active Substance: GLYCOPYRROLATE\INDACATEROL MALEATE
     Indication: CHRONIC OBSTRUCTIVE PULMONARY DISEASE
  6. CORTICOSTEROIDS [Concomitant]
     Active Substance: CORTICOSTEROID NOS
     Dosage: UNK
  7. TROMETAMOL [Concomitant]
     Active Substance: TROMETHAMINE
     Indication: ARTHRALGIA
  8. HYDROXYCHLOROQUINE [Concomitant]
     Active Substance: HYDROXYCHLOROQUINE
     Indication: FIBROMYALGIA
     Dosage: 250 MG, UNK(250 MG, ORAL, EVERY 8 HOURS FOR 2 MONTHS)
     Route: 048
  9. HYDROXYCHLOROQUINE [Concomitant]
     Active Substance: HYDROXYCHLOROQUINE
     Indication: ARTHRALGIA
  10. CYCLOBENZAPRINE. [Concomitant]
     Active Substance: CYCLOBENZAPRINE
     Indication: FIBROMYALGIA
  11. TROMETAMOL [Concomitant]
     Active Substance: TROMETHAMINE
     Indication: FIBROMYALGIA
     Dosage: 10 MG, UNK (10 MG, ORAL, EVERY 8 HOURS, FOR 2 MONTHS)
     Route: 048
  12. INDACATEROL AND GLYCOPYRROLATE [Suspect]
     Active Substance: GLYCOPYRROLATE\INDACATEROL MALEATE
     Indication: EMPHYSEMA
     Dosage: 1 DF (110/50 UG), BID, 4:00 AND 07:00 IN THE MORNING
     Route: 055
  13. ACEBROFILINA [Concomitant]
     Dosage: UNK
     Dates: start: 2015
  14. CALCIUM [Concomitant]
     Active Substance: CALCIUM
     Dosage: UNK
     Dates: start: 2015
  15. RIVOTRIL [Concomitant]
     Active Substance: CLONAZEPAM
     Dosage: UNK
  16. CYCLOBENZAPRINE. [Concomitant]
     Active Substance: CYCLOBENZAPRINE
     Indication: ARTHRALGIA
     Dosage: 60 MG, UNK(60 MG, ORAL, EVERY 8 HOURS FOR 2 MONTHS)
     Route: 048
  17. CLENIL [Concomitant]
     Active Substance: BECLOMETHASONE DIPROPIONATE
     Dosage: UNK
     Dates: start: 2015
  18. LASIX [Concomitant]
     Active Substance: FUROSEMIDE
     Dosage: 40 MG, UNK
  19. GABAPENTIN. [Concomitant]
     Active Substance: GABAPENTIN
     Indication: ARTHRALGIA
     Dosage: 250 MG, UNK (250 MG, ORAL, EVERY 8 HOURS, FOR 2 MONTHS)
     Route: 048
  20. GABAPENTIN. [Concomitant]
     Active Substance: GABAPENTIN
     Indication: FIBROMYALGIA
  21. DOMPERIDONE [Concomitant]
     Active Substance: DOMPERIDONE
     Dosage: UNK

REACTIONS (16)
  - Skin discolouration [Recovering/Resolving]
  - Memory impairment [Recovering/Resolving]
  - Pneumonitis [Unknown]
  - Muscular weakness [Unknown]
  - Concomitant disease aggravated [Recovering/Resolving]
  - Fatigue [Unknown]
  - Fibromyalgia [Recovering/Resolving]
  - Lumbar vertebral fracture [Unknown]
  - Bronchitis [Unknown]
  - Emphysema [Unknown]
  - Dysphonia [Unknown]
  - Dyspnoea [Unknown]
  - Chest pain [Unknown]
  - Inappropriate schedule of drug administration [Unknown]
  - Visual impairment [Unknown]
  - Weight increased [Unknown]
